FAERS Safety Report 17375970 (Version 3)
Quarter: 2020Q2

REPORT INFORMATION
  Report Type: Spontaneous
  Country: US (occurrence: US)
  Receive Date: 20200206
  Receipt Date: 20200512
  Transmission Date: 20200713
  Serious: No
  Sender: FDA-Public Use
  Company Number: US-BIOGEN-2020BI00831882

PATIENT
  Age: 33 Year
  Sex: Female

DRUGS (2)
  1. TYSABRI [Suspect]
     Active Substance: NATALIZUMAB
     Indication: MULTIPLE SCLEROSIS
     Route: 042
     Dates: start: 20151030
  2. TYSABRI [Suspect]
     Active Substance: NATALIZUMAB
     Route: 042
     Dates: start: 20151030

REACTIONS (24)
  - Agitation [Not Recovered/Not Resolved]
  - Speech disorder [Recovered/Resolved]
  - Vertigo [Unknown]
  - Paraesthesia [Not Recovered/Not Resolved]
  - Urinary tract infection [Recovered/Resolved]
  - Flushing [Recovered/Resolved]
  - Mobility decreased [Not Recovered/Not Resolved]
  - Hyperhidrosis [Recovered/Resolved]
  - Vomiting [Unknown]
  - Dizziness [Unknown]
  - Product dose omission [Unknown]
  - Malaise [Recovered/Resolved]
  - Confusional state [Recovered/Resolved]
  - Fall [Recovered/Resolved]
  - Fatigue [Unknown]
  - Migraine [Not Recovered/Not Resolved]
  - Prescribed underdose [Recovered/Resolved]
  - Anxiety [Not Recovered/Not Resolved]
  - Cystitis [Recovered/Resolved]
  - Anal incontinence [Recovered/Resolved]
  - Hypoaesthesia [Unknown]
  - Feeling of body temperature change [Recovered/Resolved]
  - Road traffic accident [Recovered/Resolved]
  - Nausea [Recovered/Resolved]

NARRATIVE: CASE EVENT DATE: 201710
